FAERS Safety Report 14741767 (Version 2)
Quarter: 2018Q2

REPORT INFORMATION
  Report Type: Spontaneous
  Country: FR (occurrence: FR)
  Receive Date: 20180410
  Receipt Date: 20180413
  Transmission Date: 20180711
  Serious: Yes (Other)
  Sender: FDA-Public Use
  Company Number: FR-SA-2018SA090731

PATIENT
  Age: 44 Year
  Sex: Male

DRUGS (5)
  1. DOXYLAMINE SUCCINATE. [Suspect]
     Active Substance: DOXYLAMINE SUCCINATE
     Indication: INTENTIONAL PRODUCT MISUSE
     Route: 065
  2. 3,4-METHYLENEDIOXYPYROVALERONE [Suspect]
     Active Substance: METHYLENEDIOXYPYROVALERONE HYDROCHLORIDE
     Indication: INTENTIONAL PRODUCT MISUSE
     Route: 065
  3. TRAMADOL. [Concomitant]
     Active Substance: TRAMADOL
     Indication: INTENTIONAL PRODUCT MISUSE
  4. METHYLMETHCATHINONE (4-METHYLETHCATHINONE) [Suspect]
     Active Substance: 4-METHYLETHCATHINONE
     Indication: INTENTIONAL PRODUCT MISUSE
     Route: 065
  5. MEPIVACAINE [Concomitant]
     Active Substance: MEPIVACAINE\MEPIVACAINE HYDROCHLORIDE
     Indication: INTENTIONAL PRODUCT MISUSE

REACTIONS (6)
  - Loss of consciousness [Unknown]
  - Amnesia [Unknown]
  - Intentional product misuse [Unknown]
  - Photopsia [Unknown]
  - Chemical submission [Unknown]
  - Sexual abuse [Unknown]
